FAERS Safety Report 9704532 (Version 4)
Quarter: 2014Q1

REPORT INFORMATION
  Report Type: Report from Study
  Country: IE (occurrence: IE)
  Receive Date: 20131122
  Receipt Date: 20140114
  Transmission Date: 20141002
  Serious: Yes (Hospitalization, Other)
  Sender: FDA-Public Use
  Company Number: IE-ABBVIE-13P-229-1141274-00

PATIENT
  Age: 35 Year
  Sex: Male
  Weight: 88 kg

DRUGS (8)
  1. HUMIRA [Suspect]
     Indication: PSORIATIC ARTHROPATHY
     Dosage: FOR THREE DOSES ONLY
     Route: 058
     Dates: start: 201305, end: 201309
  2. STEROIDS [Concomitant]
     Indication: PRODUCT USED FOR UNKNOWN INDICATION
  3. CYMBALTA [Concomitant]
     Indication: DEPRESSION
     Route: 048
     Dates: start: 2012
  4. DIFINE [Concomitant]
     Indication: PRODUCT USED FOR UNKNOWN INDICATION
  5. PROTON PUMP INHIBITORS [Concomitant]
     Indication: PRODUCT USED FOR UNKNOWN INDICATION
  6. DICLOFENAC [Concomitant]
     Indication: PROSTATIC SPECIFIC ANTIGEN
     Route: 048
     Dates: start: 2013
  7. LOSEC [Concomitant]
     Indication: GASTROINTESTINAL DISORDER
     Route: 048
     Dates: start: 2013
  8. LOSEC [Concomitant]
     Indication: PROPHYLAXIS

REACTIONS (4)
  - Wound complication [Recovered/Resolved]
  - Laceration [Recovered/Resolved]
  - Excoriation [Recovering/Resolving]
  - Joint swelling [Recovering/Resolving]
